FAERS Safety Report 23257584 (Version 1)
Quarter: 2023Q4

REPORT INFORMATION
  Report Type: Report from Study
  Country: CA (occurrence: CA)
  Receive Date: 20231204
  Receipt Date: 20231204
  Transmission Date: 20240110
  Serious: Yes (Other)
  Sender: FDA-Public Use
  Company Number: CA-Horizon-PRO-0183-2018

PATIENT

DRUGS (10)
  1. PROCYSBI [Suspect]
     Active Substance: CYSTEAMINE BITARTRATE
     Indication: Cystinosis
     Dosage: 600 MG, BID
     Route: 048
     Dates: start: 20180901
  2. PROCYSBI [Suspect]
     Active Substance: CYSTEAMINE BITARTRATE
     Dosage: 300 MG, BID
     Route: 048
     Dates: start: 201809
  3. PROCYSBI [Suspect]
     Active Substance: CYSTEAMINE BITARTRATE
     Dosage: 700 MG, BID
     Route: 048
  4. SODIUM BICARBONATE [Concomitant]
     Active Substance: SODIUM BICARBONATE
  5. POTASSIUM PHOSPHATE [Concomitant]
     Active Substance: POTASSIUM PHOSPHATE
  6. POTASSIUM [Concomitant]
     Active Substance: POTASSIUM
  7. CALCIUM [Concomitant]
     Active Substance: CALCIUM
  8. ROCALTROL [Concomitant]
     Active Substance: CALCITRIOL
  9. CARNITOR [Concomitant]
     Active Substance: LEVOCARNITINE
  10. CYSTAGON [Concomitant]
     Active Substance: CYSTEAMINE BITARTRATE
     Dosage: UNK
     Dates: start: 201809, end: 201809

REACTIONS (14)
  - Fear of disease [Recovered/Resolved]
  - Diarrhoea [Recovered/Resolved]
  - Nausea [Recovered/Resolved]
  - Decreased appetite [Recovered/Resolved]
  - Abdominal discomfort [Recovered/Resolved]
  - Headache [Recovered/Resolved]
  - Fibrosing colonopathy [Recovered/Resolved]
  - Abdominal distension [Unknown]
  - Blood creatinine increased [Unknown]
  - Blood calcium decreased [Unknown]
  - Blood bicarbonate decreased [Unknown]
  - Drug intolerance [Recovered/Resolved]
  - Treatment noncompliance [Recovered/Resolved]
  - Therapy cessation [Unknown]

NARRATIVE: CASE EVENT DATE: 20180101
